FAERS Safety Report 8362895-9 (Version None)
Quarter: 2012Q2

REPORT INFORMATION
  Report Type: 
  Country: None (occurrence: None)
  Receive Date: 20120514
  Receipt Date: 20120514
  Transmission Date: 20120825
  Serious: Yes (Other)
  Sender: FDA-Public Use
  Company Number: None

PATIENT
  Age: 52 Year
  Sex: Female
  Weight: 57.1532 kg

DRUGS (2)
  1. HYDROXYZINE PAMOATE [Suspect]
     Indication: INSOMNIA
     Dosage: 50 MG 2 @ NITE PO
     Route: 048
     Dates: start: 20120221, end: 20120505
  2. HYDROXYZINE HCL [Suspect]
     Dosage: 50 MG 2 @ NITE PO
     Route: 048
     Dates: start: 20120507, end: 20120510

REACTIONS (4)
  - VIOLENCE-RELATED SYMPTOM [None]
  - AGITATION [None]
  - DRUG DISPENSING ERROR [None]
  - ABNORMAL BEHAVIOUR [None]
